FAERS Safety Report 24760833 (Version 2)
Quarter: 2024Q4

REPORT INFORMATION
  Report Type: Spontaneous
  Country: JP (occurrence: JP)
  Receive Date: 20241220
  Receipt Date: 20241226
  Transmission Date: 20250115
  Serious: Yes (Hospitalization, Other)
  Sender: ALEXION PHARMACEUTICALS
  Company Number: JP-ASTRAZENECA-240143151_010520_P_1

PATIENT

DRUGS (4)
  1. FASLODEX [Suspect]
     Active Substance: FULVESTRANT
     Indication: Breast cancer female
     Dosage: 1 DOSE
  2. FASLODEX [Suspect]
     Active Substance: FULVESTRANT
     Dosage: 1 DOSE
     Route: 030
  3. FASLODEX [Suspect]
     Active Substance: FULVESTRANT
     Dosage: 1 DOSE
  4. FASLODEX [Suspect]
     Active Substance: FULVESTRANT
     Dosage: 1 DOSE
     Route: 030

REACTIONS (1)
  - Diabetes mellitus inadequate control [Unknown]
